FAERS Safety Report 26209036 (Version 1)
Quarter: 2025Q4

REPORT INFORMATION
  Report Type: Spontaneous
  Country: EU (occurrence: EU)
  Receive Date: 20251229
  Receipt Date: 20251229
  Transmission Date: 20260118
  Serious: Yes (Other)
  Sender: MERCK SHARP & DOHME LLC
  Company Number: EU-009507513-2363126

PATIENT
  Age: 70 Year
  Sex: Female

DRUGS (9)
  1. PEMBROLIZUMAB [Suspect]
     Active Substance: PEMBROLIZUMAB
     Indication: Squamous cell carcinoma of lung
     Dosage: NEOADJUVANT TREATMENT
     Dates: start: 20250609, end: 20250819
  2. PEMBROLIZUMAB [Suspect]
     Active Substance: PEMBROLIZUMAB
     Indication: Squamous cell carcinoma of lung
     Dosage: POSTOPERATIVE
     Dates: start: 20251031
  3. METFORMIN HYDROCHLORIDE [Concomitant]
     Active Substance: METFORMIN HYDROCHLORIDE
     Dosage: 500 MG 1X1
  4. CITALOPRAM HYDROBROMIDE [Concomitant]
     Active Substance: CITALOPRAM HYDROBROMIDE
     Dosage: 20 MG 1X1
  5. RAMIPRIL [Concomitant]
     Active Substance: RAMIPRIL
     Dosage: 2.5 MG 1X1
  6. ASPIRIN [Concomitant]
     Active Substance: ASPIRIN
     Dosage: 75 MG 1X1
  7. Ostanil [Concomitant]
     Dosage: 75 MG 1X/WEEK
  8. CARBOPLATIN [Suspect]
     Active Substance: CARBOPLATIN
     Indication: Squamous cell carcinoma of lung
     Dates: start: 20250609, end: 20250819
  9. GEMCITABINE [Suspect]
     Active Substance: GEMCITABINE
     Indication: Squamous cell carcinoma of lung
     Dates: start: 20250609, end: 20250819

REACTIONS (8)
  - Hyperthyroidism [Unknown]
  - Skin toxicity [Recovered/Resolved]
  - Hypothyroidism [Not Recovered/Not Resolved]
  - Anaemia [Unknown]
  - Pulmonary resection [Recovered/Resolved]
  - Mediastinal lymphadenectomy [Recovered/Resolved]
  - Therapy partial responder [Unknown]
  - Malignant neoplasm progression [Unknown]

NARRATIVE: CASE EVENT DATE: 20250101
